FAERS Safety Report 5474879-9 (Version None)
Quarter: 2007Q4

REPORT INFORMATION
  Report Type: 
  Country: None (occurrence: None)
  Receive Date: 20071002
  Receipt Date: 20070924
  Transmission Date: 20080405
  Serious: Yes (Hospitalization)
  Sender: FDA-Public Use
  Company Number: FR-ROCHE-521290

PATIENT
  Age: 62 Year
  Sex: Female

DRUGS (3)
  1. PEGASYS [Suspect]
     Indication: HEPATITIS C
     Dosage: FORM REPORTED AS INJECTABLE SOLUTION
     Route: 058
     Dates: start: 20041115
  2. COPEGUS [Suspect]
     Indication: HEPATITIS C
     Dosage: DOSAGE REPORTED AS 200 MG 5X/
     Route: 048
     Dates: start: 20041115
  3. MANTADIX [Concomitant]
     Indication: HEPATITIS C
     Route: 048
     Dates: start: 20061012

REACTIONS (4)
  - HEADACHE [None]
  - NAUSEA [None]
  - VERTIGO [None]
  - VOMITING [None]
